FAERS Safety Report 11718839 (Version 1)
Quarter: 2015Q4

REPORT INFORMATION
  Report Type: Spontaneous
  Country: GB (occurrence: GB)
  Receive Date: 20151110
  Receipt Date: 20151110
  Transmission Date: 20160304
  Serious: Yes (Other)
  Sender: FDA-Public Use
  Company Number: GB-PFIZER INC-2015365202

PATIENT
  Age: 73 Year
  Sex: Male

DRUGS (2)
  1. XALKORI [Suspect]
     Active Substance: CRIZOTINIB
     Dosage: 200 MG, 2X/DAY
     Dates: start: 201407, end: 201504
  2. XALKORI [Suspect]
     Active Substance: CRIZOTINIB
     Indication: NON-SMALL CELL LUNG CANCER
     Dosage: 250 MG, 2X/DAY
     Dates: end: 201407

REACTIONS (12)
  - Fatigue [Unknown]
  - Constipation [Unknown]
  - Back pain [Recovering/Resolving]
  - Dyspnoea [Unknown]
  - Spinal fracture [Unknown]
  - Chest pain [Unknown]
  - Visual impairment [Recovering/Resolving]
  - Aspartate aminotransferase increased [Recovered/Resolved]
  - Oedema peripheral [Unknown]
  - Alanine aminotransferase increased [Recovered/Resolved]
  - Dizziness [Recovering/Resolving]
  - Arthralgia [Unknown]

NARRATIVE: CASE EVENT DATE: 201405
